FAERS Safety Report 20931617 (Version 1)
Quarter: 2022Q2

REPORT INFORMATION
  Report Type: Other
  Country: US (occurrence: None)
  Receive Date: 20220608
  Receipt Date: 20220608
  Transmission Date: 20220720
  Serious: No
  Sender: FDA-Public Use
  Company Number: US-ROCHE-2894026

PATIENT
  Age: 73 Year
  Sex: Female

DRUGS (5)
  1. TOCILIZUMAB [Suspect]
     Active Substance: TOCILIZUMAB
     Indication: COVID-19
     Route: 065
  2. REMDESIVIR [Concomitant]
     Active Substance: REMDESIVIR
  3. HYDROXYCHLOROQUINE [Concomitant]
     Active Substance: HYDROXYCHLOROQUINE
  4. RIBAVIRIN [Concomitant]
     Active Substance: RIBAVIRIN
  5. LOPINAVIR\RITONAVIR [Concomitant]
     Active Substance: LOPINAVIR\RITONAVIR

REACTIONS (2)
  - Off label use [Unknown]
  - No adverse event [Unknown]
